FAERS Safety Report 6884671-6 (Version None)
Quarter: 2010Q3

REPORT INFORMATION
  Report Type: 
  Country: None (occurrence: None)
  Receive Date: 20100729
  Receipt Date: 20100715
  Transmission Date: 20110219
  Serious: Yes (Hospitalization, Other)
  Sender: FDA-Public Use
  Company Number: PHHY2010FR46476

PATIENT
  Age: 50 Year
  Sex: Male

DRUGS (4)
  1. LESCOL [Suspect]
     Dosage: 80 MG, QD
     Route: 048
     Dates: end: 20100615
  2. RAMIPRIL [Suspect]
     Dosage: 10 MG, QD
     Route: 048
     Dates: end: 20100615
  3. ALDACTAZINE [Suspect]
     Dosage: UNK
     Route: 048
     Dates: end: 20100615
  4. BISOPROLOL [Concomitant]
     Dosage: 1 DF, QD
     Route: 048

REACTIONS (10)
  - BLISTER [None]
  - ECCHYMOSIS [None]
  - HAEMATOMA [None]
  - HEART RATE INCREASED [None]
  - HEPATIC STEATOSIS [None]
  - HEPATOMEGALY [None]
  - MUCOSA VESICLE [None]
  - THROMBOCYTOPENIA [None]
  - VASCULAR PURPURA [None]
  - VITAMIN D DECREASED [None]
